FAERS Safety Report 8314583-2 (Version None)
Quarter: 2012Q2

REPORT INFORMATION
  Report Type: 
  Country: None (occurrence: None)
  Receive Date: 20120426
  Receipt Date: 20120417
  Transmission Date: 20120825
  Serious: Yes (Hospitalization)
  Sender: FDA-Public Use
  Company Number: US-ASTRAZENECA-2012SE25095

PATIENT
  Age: 77 Year
  Sex: Female

DRUGS (3)
  1. ASPIRIN [Concomitant]
  2. UNSPECIFIED [Concomitant]
  3. NEXIUM [Suspect]
     Indication: GASTRIC DISORDER
     Route: 048
     Dates: start: 20020101, end: 20120301

REACTIONS (5)
  - UTERINE PROLAPSE [None]
  - DYSURIA [None]
  - CHAPPED LIPS [None]
  - GASTRIC DISORDER [None]
  - MYOCARDIAL INFARCTION [None]
